FAERS Safety Report 6128407-5 (Version None)
Quarter: 2009Q1

REPORT INFORMATION
  Report Type: 
  Country: None (occurrence: None)
  Receive Date: 20090323
  Receipt Date: 20080814
  Transmission Date: 20090719
  Serious: No
  Sender: FDA-Public Use
  Company Number: US-ABBOTT-08P-163-0470828-00

PATIENT
  Sex: Female

DRUGS (1)
  1. ERYTHROMYCIN DELAYED RELEASE TABLETS [Suspect]
     Indication: SINUSITIS
     Route: 048
     Dates: start: 19950101, end: 19950101

REACTIONS (2)
  - HEADACHE [None]
  - NAUSEA [None]
